FAERS Safety Report 22218299 (Version 4)
Quarter: 2024Q4

REPORT INFORMATION
  Report Type: Spontaneous
  Country: US (occurrence: US)
  Receive Date: 20230417
  Receipt Date: 20241023
  Transmission Date: 20250114
  Serious: No
  Sender: PFIZER
  Company Number: US-PFIZER INC-202300144992

PATIENT
  Age: 11 Year
  Sex: Male
  Weight: 38.56 kg

DRUGS (2)
  1. GENOTROPIN [Suspect]
     Active Substance: SOMATROPIN
     Indication: Blood growth hormone abnormal
     Dosage: 1.2 MG, 1X/DAY (AT BEDTIME)
     Route: 058
     Dates: start: 202208
  2. GENOTROPIN [Suspect]
     Active Substance: SOMATROPIN
     Indication: Short stature
     Dosage: DAILY DOSE 1.4 MG/DAY 7 DAYS/WEEK

REACTIONS (5)
  - Device difficult to use [Unknown]
  - Device defective [Unknown]
  - Drug dose omission by device [Unknown]
  - Injection site pain [Unknown]
  - Injection site bruising [Unknown]

NARRATIVE: CASE EVENT DATE: 20230301
